FAERS Safety Report 4983866-6 (Version None)
Quarter: 2006Q2

REPORT INFORMATION
  Report Type: 
  Country: None (occurrence: None)
  Receive Date: 20060426
  Receipt Date: 20051221
  Transmission Date: 20061013
  Serious: Yes (Hospitalization, Disabling)
  Sender: FDA-Public Use
  Company Number: US-MERCK-0512USA03416

PATIENT
  Age: 49 Year
  Sex: Male
  Weight: 86 kg

DRUGS (11)
  1. VIOXX [Suspect]
     Indication: BACK PAIN
     Route: 048
     Dates: start: 20010824, end: 20040930
  2. CELEXA [Concomitant]
     Indication: ANXIETY
     Route: 065
  3. SUCRALFATE [Concomitant]
     Indication: HYPERCHLORHYDRIA
     Route: 065
  4. ULTRAM [Concomitant]
     Indication: BACK PAIN
     Route: 065
     Dates: start: 20011015
  5. DURAGESIC-100 [Concomitant]
     Indication: BACK PAIN
     Route: 065
     Dates: start: 20011101
  6. PRILOSEC [Concomitant]
     Indication: HYPERCHLORHYDRIA
     Route: 065
  7. ZONEGRAN [Concomitant]
     Indication: CONVULSION
     Route: 065
  8. ISOSORBIDE [Concomitant]
     Indication: ANGINA PECTORIS
     Route: 065
  9. NEXIUM [Concomitant]
     Indication: HYPERCHLORHYDRIA
     Route: 065
  10. NIASPAN [Concomitant]
     Indication: BLOOD CHOLESTEROL INCREASED
     Route: 065
  11. TYLENOL (CAPLET) [Concomitant]
     Route: 065

REACTIONS (10)
  - ANXIETY [None]
  - BLOOD CHOLESTEROL INCREASED [None]
  - BLOOD PRESSURE INCREASED [None]
  - CHRONIC FATIGUE SYNDROME [None]
  - CORONARY ARTERY DISEASE [None]
  - CORONARY ARTERY OCCLUSION [None]
  - DEPRESSION [None]
  - JOINT SPRAIN [None]
  - MYOCARDIAL INFARCTION [None]
  - POST PROCEDURAL COMPLICATION [None]
